FAERS Safety Report 7611716-8 (Version None)
Quarter: 2011Q3

REPORT INFORMATION
  Report Type: 
  Country: None (occurrence: None)
  Receive Date: 20110715
  Receipt Date: 20110705
  Transmission Date: 20111222
  Serious: Yes (Hospitalization)
  Sender: FDA-Public Use
  Company Number: IL-SANOFI-AVENTIS-2011SA043797

PATIENT
  Age: 75 Year
  Sex: Male
  Weight: 120 kg

DRUGS (8)
  1. INSULIN [Concomitant]
  2. ENOXAPARIN SODIUM [Concomitant]
     Dates: start: 20110619, end: 20110627
  3. FLUVASTATIN [Concomitant]
  4. LOSARTAN [Concomitant]
  5. AMIODARONE HCL [Concomitant]
     Dates: start: 20110504, end: 20110505
  6. DRONEDARONE HCL [Suspect]
     Indication: ATRIAL FIBRILLATION
     Route: 048
     Dates: start: 20110208
  7. ALFUZOSIN HCL [Concomitant]
  8. WARFARIN SODIUM [Concomitant]
     Dosage: 20 MG WEEKLY

REACTIONS (3)
  - CEREBROVASCULAR ACCIDENT [None]
  - POST PROCEDURAL HAEMORRHAGE [None]
  - ATRIAL FLUTTER [None]
